FAERS Safety Report 6522693-5 (Version None)
Quarter: 2009Q4

REPORT INFORMATION
  Report Type: 
  Country: None (occurrence: None)
  Receive Date: 20091222
  Receipt Date: 20091208
  Transmission Date: 20100525
  Serious: Yes (Congenital Anomaly)
  Sender: FDA-Public Use
  Company Number: 2009AL007672

PATIENT
  Weight: 3.97 kg

DRUGS (2)
  1. PROPHYLTHIOURACIL  (PUREPAC)) [Suspect]
     Dosage: 100 MG, TID, TRPL
     Route: 064
  2. PROPRANOLOL [Concomitant]

REACTIONS (7)
  - CAESAREAN SECTION [None]
  - CONGENITAL HYPOTHYROIDISM [None]
  - GOITRE CONGENITAL [None]
  - HYPERTHYROIDISM [None]
  - MATERNAL DRUGS AFFECTING FOETUS [None]
  - NEONATAL CARDIAC FAILURE [None]
  - NEONATAL DISORDER [None]
